FAERS Safety Report 10440727 (Version 1)
Quarter: 2014Q3

REPORT INFORMATION
  Report Type: Spontaneous
  Country: US (occurrence: US)
  Receive Date: 20140909
  Receipt Date: 20140909
  Transmission Date: 20150326
  Serious: Yes (Other)
  Sender: FDA-Public Use
  Company Number: US-BEH-2014044798

PATIENT
  Age: 46 Year
  Sex: Female
  Weight: 81 kg

DRUGS (29)
  1. LMX [Concomitant]
     Active Substance: LIDOCAINE
  2. FLUOXETINE [Concomitant]
     Active Substance: FLUOXETINE\FLUOXETINE HYDROCHLORIDE
  3. ADVAIR HFA [Concomitant]
     Active Substance: FLUTICASONE PROPIONATE\SALMETEROL XINAFOATE
  4. CEFUROXIME. [Concomitant]
     Active Substance: CEFUROXIME
  5. ASPIRIN. [Concomitant]
     Active Substance: ASPIRIN
  6. ZEMAIRA [Suspect]
     Active Substance: .ALPHA.1-PROTEINASE INHIBITOR HUMAN
     Indication: ALPHA-1 ANTI-TRYPSIN DEFICIENCY
     Dosage: 957 MG VIAL
     Route: 042
  7. EPIPEN [Concomitant]
     Active Substance: EPINEPHRINE
  8. LISINOPRIL. [Concomitant]
     Active Substance: LISINOPRIL
  9. CIPROFLOXACIN. [Concomitant]
     Active Substance: CIPROFLOXACIN
  10. PROAIR HFA [Concomitant]
     Active Substance: ALBUTEROL SULFATE
  11. HEPARIN [Concomitant]
     Active Substance: HEPARIN SODIUM
  12. SODIUM CHLORIDE. [Concomitant]
     Active Substance: SODIUM CHLORIDE
  13. OXYCODONE [Concomitant]
     Active Substance: OXYCODONE
  14. PREDNISONE. [Concomitant]
     Active Substance: PREDNISONE
  15. ALBUTEROL. [Concomitant]
     Active Substance: ALBUTEROL
  16. LIDOCAINE. [Concomitant]
     Active Substance: LIDOCAINE
  17. DIAZEPAM. [Concomitant]
     Active Substance: DIAZEPAM
  18. CARVEDILOL. [Concomitant]
     Active Substance: CARVEDILOL
  19. DOXYCYCLINE. [Concomitant]
     Active Substance: DOXYCYCLINE
  20. ACETAMINOPHEN. [Concomitant]
     Active Substance: ACETAMINOPHEN
  21. DIPHENHYDRAMINE [Concomitant]
     Active Substance: DIPHENHYDRAMINE
  22. CEFDINIR. [Concomitant]
     Active Substance: CEFDINIR
  23. SPIRIVA [Concomitant]
     Active Substance: TIOTROPIUM BROMIDE MONOHYDRATE
  24. OXYGEN. [Concomitant]
     Active Substance: OXYGEN
  25. MULTIVITAMINS [Concomitant]
     Active Substance: VITAMINS
  26. FLUCONAZOLE. [Concomitant]
     Active Substance: FLUCONAZOLE
  27. KETOCONAZOLE. [Concomitant]
     Active Substance: KETOCONAZOLE
  28. AVELOX [Concomitant]
     Active Substance: MOXIFLOXACIN HYDROCHLORIDE
  29. IBUPROFEN. [Concomitant]
     Active Substance: IBUPROFEN

REACTIONS (1)
  - Myocardial infarction [Unknown]

NARRATIVE: CASE EVENT DATE: 20140803
